FAERS Safety Report 8858649 (Version 2)
Quarter: 2012Q4

REPORT INFORMATION
  Report Type: 
  Country: US (occurrence: US)
  Receive Date: 20121024
  Receipt Date: 20121210
  Transmission Date: 20130627
  Serious: Yes (Death, Life-Threatening, Hospitalization, Other)
  Sender: FDA-Public Use
  Company Number: US-SHIRE-ALL1-2012-03573

PATIENT
  Age: 56 None
  Sex: Male

DRUGS (15)
  1. FOSRENOL [Suspect]
     Indication: HYPERPHOSPHATAEMIA
     Dosage: 2 g, Other (with meals)
     Route: 048
     Dates: end: 20120406
  2. FOSRENOL [Suspect]
     Dosage: 1000 mg, Other (8 times per day)
     Route: 048
  3. COREG [Concomitant]
     Indication: PRODUCT USED FOR UNKNOWN INDICATION
     Dosage: 6.25 mg, Other (q 12)
     Route: 048
  4. NEURONTIN [Concomitant]
     Indication: PRODUCT USED FOR UNKNOWN INDICATION
     Dosage: 300 mg, 1x/day:qd (bedtime)
     Route: 048
  5. INSULIN [Concomitant]
     Indication: PRODUCT USED FOR UNKNOWN INDICATION
     Dosage: sliding scale, Other (before meals and at bedtime)
     Route: 065
  6. INSULIN N [Concomitant]
     Indication: PRODUCT USED FOR UNKNOWN INDICATION
     Dosage: 20 units, 3x/day:tid
     Route: 058
  7. PRILOSEC                           /00661201/ [Concomitant]
     Indication: PRODUCT USED FOR UNKNOWN INDICATION
     Dosage: 20 mg, 1x/day:qd
     Route: 065
  8. PREDNISONE [Concomitant]
     Indication: PRODUCT USED FOR UNKNOWN INDICATION
     Dosage: 10 mg, 1x/day:qd
     Route: 065
     Dates: end: 201204
  9. NEPHROCAPS                         /01801401/ [Concomitant]
     Indication: PRODUCT USED FOR UNKNOWN INDICATION
     Dosage: 1 DF, 1x/day:qd
     Route: 065
  10. FISH OIL [Concomitant]
     Indication: PRODUCT USED FOR UNKNOWN INDICATION
     Dosage: 1 g, 1x/day:qd
     Route: 065
  11. SENOKOT                            /00142201/ [Concomitant]
     Indication: PRODUCT USED FOR UNKNOWN INDICATION
     Dosage: 1 DF, 2x/day:bid
     Route: 065
  12. VITAMIN D3 [Concomitant]
     Indication: PRODUCT USED FOR UNKNOWN INDICATION
     Dosage: 2000 IU, 1x/day:qd
     Route: 065
  13. LISINOPRIL [Concomitant]
     Indication: PRODUCT USED FOR UNKNOWN INDICATION
     Dosage: 10 mg, 1x/day:qd
     Route: 065
  14. PROBIOTICA P3 [Concomitant]
     Indication: PRODUCT USED FOR UNKNOWN INDICATION
     Dosage: UNK, 1x/day:qd
     Route: 065
  15. METAMUCIL                          /00029101/ [Concomitant]
     Indication: PRODUCT USED FOR UNKNOWN INDICATION
     Dosage: UNK, 1x/day:qd
     Route: 065

REACTIONS (21)
  - Cardiac arrest [Fatal]
  - Sepsis [Fatal]
  - Cardio-respiratory arrest [Unknown]
  - Back pain [Unknown]
  - Dyspnoea [Unknown]
  - Septic shock [Unknown]
  - Respiratory failure [Recovered/Resolved with Sequelae]
  - Thrombocytopenia [Unknown]
  - Anaemia [Unknown]
  - Staphylococcal bacteraemia [Unknown]
  - Pneumonia staphylococcal [Unknown]
  - Device related infection [Unknown]
  - Acute myocardial infarction [Unknown]
  - Pulmonary mass [Unknown]
  - Metabolic encephalopathy [Recovered/Resolved]
  - Right ventricular dysfunction [Unknown]
  - Ejection fraction decreased [Unknown]
  - Osteomyelitis [Unknown]
  - Intervertebral discitis [Unknown]
  - Pneumonia bacterial [Unknown]
  - Prescribed overdose [Unknown]
